FAERS Safety Report 21292659 (Version 1)
Quarter: 2022Q3

REPORT INFORMATION
  Report Type: Spontaneous
  Country: HR (occurrence: HR)
  Receive Date: 20220905
  Receipt Date: 20220905
  Transmission Date: 20221027
  Serious: Yes (Other)
  Sender: FDA-Public Use
  Company Number: None

PATIENT
  Sex: Female

DRUGS (8)
  1. CELECOXIB [Suspect]
     Active Substance: CELECOXIB
     Indication: Product used for unknown indication
     Dosage: UNK, ADDITIONAL INFO : ADR IS ADEQUATELY LABELLED: NO.
     Route: 065
  2. VALSARTAN [Suspect]
     Active Substance: VALSARTAN
     Indication: Product used for unknown indication
     Dosage: UNK , ADDITIONAL INFORMATION :ADR IS ADEQUATELY LABELLED: NO
     Route: 065
  3. ESOMEPRAZOLE MAGNESIUM [Suspect]
     Active Substance: ESOMEPRAZOLE MAGNESIUM
     Indication: Product used for unknown indication
     Dosage: UNK, ADDITIONAL INFORMATION :ADR IS ADEQUATELY LABELLED: NO
     Route: 065
  4. NORVASC [Suspect]
     Active Substance: AMLODIPINE BESYLATE
     Indication: Product used for unknown indication
     Dosage: UNK, ADDITIONAL INFORMATION :ADR IS ADEQUATELY LABELLED: NO.
     Route: 065
  5. MOXONIDINE [Suspect]
     Active Substance: MOXONIDINE
     Indication: Product used for unknown indication
     Dosage: UNK, ADDITIONAL INFORMATION :ADR IS ADEQUATELY LABELLED: NO.
     Route: 065
  6. ZALDIAR [Suspect]
     Active Substance: ACETAMINOPHEN\TRAMADOL HYDROCHLORIDE
     Indication: Product used for unknown indication
     Dosage: UNK, THERAPY START DATE  : NASK, ADDITIONAL INFORMATION :ADR IS ADEQUATELY LABELLED: NO.
     Route: 065
     Dates: end: 20220802
  7. INDOMETHACIN [Suspect]
     Active Substance: INDOMETHACIN
     Indication: Product used for unknown indication
     Dosage: UNK , THERAPY START DATE  : NASK , ADDITIONAL INFORMATION :ADR IS ADEQUATELY LABELLED: NO.
     Route: 065
     Dates: end: 20220802
  8. INDAPAMIDE [Suspect]
     Active Substance: INDAPAMIDE
     Indication: Product used for unknown indication
     Dosage: UNK , ADDITIONAL INFORMATION :ADR IS ADEQUATELY LABELLED: NO.
     Route: 065

REACTIONS (4)
  - Apnoea [Unknown]
  - Joint swelling [Unknown]
  - Arthralgia [Unknown]
  - Nasal congestion [Unknown]

NARRATIVE: CASE EVENT DATE: 20220101
